FAERS Safety Report 21880520 (Version 2)
Quarter: 2023Q1

REPORT INFORMATION
  Report Type: Spontaneous
  Country: ES (occurrence: ES)
  Receive Date: 20230118
  Receipt Date: 20230125
  Transmission Date: 20230417
  Serious: Yes (Hospitalization, Other)
  Sender: FDA-Public Use
  Company Number: ES-LUNDBECK-DKLU3056966

PATIENT
  Age: 32 Year
  Sex: Male

DRUGS (1)
  1. BRINTELLIX [Suspect]
     Active Substance: VORTIOXETINE HYDROBROMIDE
     Indication: Product used for unknown indication
     Dosage: 17 DOSAGE FORM
     Route: 065

REACTIONS (5)
  - Overdose [Recovered/Resolved]
  - Suicidal ideation [Recovered/Resolved]
  - Dyspepsia [Recovered/Resolved]
  - Mania [Recovered/Resolved]
  - Agitation [Recovered/Resolved]
